FAERS Safety Report 9537019 (Version 3)
Quarter: 2013Q4

REPORT INFORMATION
  Report Type: Spontaneous
  Country: GB (occurrence: GB)
  Receive Date: 20130919
  Receipt Date: 20131213
  Transmission Date: 20140711
  Serious: Yes (Death, Hospitalization, Other)
  Sender: FDA-Public Use
  Company Number: GB-AMGEN-GBRSP2013065951

PATIENT
  Age: 52 Year
  Sex: Male
  Weight: 90 kg

DRUGS (6)
  1. ENBREL [Suspect]
     Indication: RHEUMATOID ARTHRITIS
     Dosage: 50 MG, WEEKLY
     Route: 058
     Dates: start: 201104, end: 201309
  2. NAPROXEN [Concomitant]
     Dosage: 250 MG, 2X/DAY
     Route: 048
  3. NAPROXEN [Concomitant]
     Dosage: 500 MG, UNK
     Dates: end: 20130905
  4. ETODOLAC [Concomitant]
     Dosage: 600 MG, 1X/DAY AT NIGHT
  5. PARACETAMOL [Concomitant]
     Dosage: UNK UNK, QD
  6. OMEPRAZOLE [Concomitant]
     Dosage: 20 MG, 1X/DAY (FOR YEARS)
     Route: 048
     Dates: end: 20130905

REACTIONS (11)
  - Organ failure [Fatal]
  - Disseminated intravascular coagulation [Not Recovered/Not Resolved]
  - Diarrhoea [Not Recovered/Not Resolved]
  - Vomiting [Not Recovered/Not Resolved]
  - Dehydration [Not Recovered/Not Resolved]
  - Rheumatoid arthritis [Not Recovered/Not Resolved]
  - Connective tissue disorder [Not Recovered/Not Resolved]
  - Hypertension [Not Recovered/Not Resolved]
  - Immunosuppression [Not Recovered/Not Resolved]
  - Sepsis [Fatal]
  - Pneumonia [Not Recovered/Not Resolved]
